FAERS Safety Report 4966009-4 (Version None)
Quarter: 2006Q2

REPORT INFORMATION
  Report Type: 
  Country: None (occurrence: None)
  Receive Date: 20060407
  Receipt Date: 20050119
  Transmission Date: 20061013
  Serious: Yes (Hospitalization)
  Sender: FDA-Public Use
  Company Number: JP-GLAXOSMITHKLINE-B0365217A

PATIENT
  Age: 36 Year
  Sex: Male

DRUGS (21)
  1. ABACAVIR SULFATE [Suspect]
     Indication: HIV INFECTION
     Dosage: 600MG PER DAY
     Route: 048
     Dates: start: 20030427
  2. EPIVIR [Suspect]
     Indication: HIV INFECTION
     Dosage: 300MG PER DAY
     Route: 048
     Dates: start: 19980710
  3. DIDANOSINE [Suspect]
     Indication: HIV INFECTION
     Dosage: 250MG PER DAY
     Route: 048
     Dates: start: 20030427
  4. EFAVIRENZ [Suspect]
     Indication: HIV INFECTION
     Dosage: 600MG PER DAY
     Route: 048
     Dates: start: 20030427
  5. STAVUDINE [Concomitant]
     Indication: ACQUIRED IMMUNODEFICIENCY SYNDROME
     Dosage: 30MG TWICE PER DAY
     Route: 048
     Dates: start: 19971013, end: 20030426
  6. NELFINAVIR MESYLATE [Concomitant]
     Indication: ACQUIRED IMMUNODEFICIENCY SYNDROME
     Route: 048
     Dates: start: 19971013, end: 20030426
  7. ASPARA CA [Concomitant]
     Indication: DIARRHOEA
     Dosage: 600MG TWICE PER DAY
     Route: 048
     Dates: start: 20030401, end: 20030426
  8. LOPERAMIDE HYDROCHLORIDE [Concomitant]
     Indication: DIARRHOEA
     Dosage: 1MG TWICE PER DAY
     Route: 048
     Dates: start: 20030401, end: 20030426
  9. ALLOPURINOL [Concomitant]
     Indication: HYPERURICAEMIA
     Dosage: 100MG TWICE PER DAY
     Route: 048
     Dates: start: 20030401, end: 20030403
  10. BERBERINE [Concomitant]
     Indication: DIARRHOEA
     Dosage: 2TAB TWICE PER DAY
     Route: 048
     Dates: start: 20030401, end: 20030426
  11. PHENOBARBITONE + PHENYTOIN [Concomitant]
     Indication: CONVULSION PROPHYLAXIS
     Dosage: 6TAB TWICE PER DAY
     Route: 048
     Dates: start: 20030401, end: 20030409
  12. CO-TRIMOXAZOLE [Concomitant]
     Indication: INFECTION PROPHYLAXIS
     Dosage: 1TAB PER DAY
     Route: 048
     Dates: start: 20030401
  13. VALPROIC ACID [Concomitant]
     Indication: CONVULSION PROPHYLAXIS
     Dosage: 400MG TWICE PER DAY
     Route: 048
     Dates: start: 20030410, end: 20030413
  14. ZONISAMIDE [Concomitant]
     Indication: CONVULSION PROPHYLAXIS
     Route: 048
     Dates: start: 20030414
  15. PHENOBARBITONE [Concomitant]
     Indication: CONVULSION PROPHYLAXIS
     Route: 065
     Dates: start: 20030416, end: 20030508
  16. CLOBAZAM [Concomitant]
     Indication: CONVULSION PROPHYLAXIS
     Dosage: 10MG PER DAY
     Route: 048
     Dates: start: 20031204
  17. COMBIVIR [Concomitant]
     Indication: HIV INFECTION
     Dosage: 2TAB PER DAY
     Route: 048
     Dates: start: 20040630, end: 20040727
  18. RETROVIR [Concomitant]
     Indication: HIV INFECTION
     Route: 048
     Dates: start: 20040728, end: 20040805
  19. VIREAD [Concomitant]
     Indication: HIV INFECTION
     Dosage: 300MG PER DAY
     Route: 048
     Dates: start: 20040630, end: 20041216
  20. ALTAT [Concomitant]
     Indication: GASTRITIS
     Dosage: 75MG PER DAY
     Route: 048
     Dates: start: 20040804, end: 20041222
  21. KALETRA [Concomitant]
     Indication: HIV INFECTION
     Route: 048
     Dates: start: 20040630

REACTIONS (11)
  - ABDOMINAL DISCOMFORT [None]
  - ABDOMINAL PAIN UPPER [None]
  - C-REACTIVE PROTEIN INCREASED [None]
  - CHOLECYSTECTOMY [None]
  - CHOLECYSTITIS ACUTE [None]
  - CHOLELITHIASIS [None]
  - CONVULSION [None]
  - DEPRESSED LEVEL OF CONSCIOUSNESS [None]
  - MUSCLE SPASMS [None]
  - NEUROGENIC BLADDER [None]
  - PYREXIA [None]
